FAERS Safety Report 19287457 (Version 2)
Quarter: 2021Q2

REPORT INFORMATION
  Report Type: Spontaneous
  Country: CN (occurrence: CN)
  Receive Date: 20210522
  Receipt Date: 20210617
  Transmission Date: 20210717
  Serious: No
  Sender: FDA-Public Use
  Company Number: CN-LUPIN PHARMACEUTICALS INC.-2021-07556

PATIENT
  Age: 23 Year
  Sex: Female

DRUGS (6)
  1. METHYLPREDNISOLONE. [Suspect]
     Active Substance: METHYLPREDNISOLONE
     Indication: DEAFNESS NEUROSENSORY
     Dosage: 0.4 MILLILITER, FIVE TIMES ONCE EVERY 2 DAYS
  2. GINKGO [Suspect]
     Active Substance: GINKGO
     Indication: DEAFNESS NEUROSENSORY
     Dosage: UNK?LEAF EXTRACT
     Route: 042
  3. ALPROSTADIL. [Suspect]
     Active Substance: ALPROSTADIL
     Indication: DEAFNESS NEUROSENSORY
     Dosage: 10 MILLIGRAM, QD INFUSION
     Route: 042
  4. LIDOCAINE. [Suspect]
     Active Substance: LIDOCAINE
     Indication: DEAFNESS NEUROSENSORY
     Dosage: 0.1 MILLILITER, FIVE TIMES ONCE EVERY 2 DAYS
  5. DIPYRIDAMOLE. [Suspect]
     Active Substance: DIPYRIDAMOLE
     Indication: DEAFNESS NEUROSENSORY
     Dosage: 15 MILLIGRAM, BID
     Route: 042
  6. BATROXOBIN [Suspect]
     Active Substance: BATROXOBIN
     Indication: DEAFNESS NEUROSENSORY
     Dosage: UNK, QOD
     Route: 065

REACTIONS (1)
  - Exposure during pregnancy [Unknown]
